FAERS Safety Report 6576217-7 (Version None)
Quarter: 2010Q1

REPORT INFORMATION
  Report Type: 
  Country: None (occurrence: None)
  Receive Date: 20100209
  Receipt Date: 20100128
  Transmission Date: 20100710
  Serious: Yes (Other)
  Sender: FDA-Public Use
  Company Number: DE-ELI_LILLY_AND_COMPANY-DE201001005731

PATIENT
  Age: 69 Year
  Sex: Female

DRUGS (3)
  1. BYETTA [Suspect]
     Indication: TYPE 2 DIABETES MELLITUS
     Dosage: UNK, UNKNOWN
     Route: 058
     Dates: start: 20071201, end: 20091201
  2. SARTAN [Concomitant]
     Dosage: UNK, UNKNOWN
  3. BETA BLOCKING AGENTS [Concomitant]
     Dosage: UNK, UNKNOWN

REACTIONS (1)
  - PANCREATIC CARCINOMA METASTATIC [None]
